APPROVED DRUG PRODUCT: OLANZAPINE AND FLUOXETINE HYDROCHLORIDE
Active Ingredient: FLUOXETINE HYDROCHLORIDE; OLANZAPINE
Strength: EQ 50MG BASE;EQ 6MG BASE
Dosage Form/Route: CAPSULE;ORAL
Application: A077742 | Product #004 | TE Code: AB
Applicant: PH HEALTH LTD
Approved: Nov 2, 2012 | RLD: No | RS: No | Type: RX